FAERS Safety Report 12450380 (Version 1)
Quarter: 2016Q2

REPORT INFORMATION
  Report Type: Spontaneous
  Country: US (occurrence: None)
  Receive Date: 20160608
  Receipt Date: 20160608
  Transmission Date: 20160815
  Serious: Yes (Disabling)
  Sender: FDA-Public Use
  Company Number: None

PATIENT
  Age: 70 Year
  Sex: Female
  Weight: 48.99 kg

DRUGS (1)
  1. PROLIA [Suspect]
     Active Substance: DENOSUMAB
     Indication: OSTEOPOROSIS
     Dosage: 1 INJECTION(S)    6 MONTHS   INJECTED INTO STOMACH TISSUE
     Dates: start: 20160509

REACTIONS (4)
  - Back pain [None]
  - Arthralgia [None]
  - Neck pain [None]
  - Bone pain [None]

NARRATIVE: CASE EVENT DATE: 20160509
